FAERS Safety Report 11228543 (Version 1)
Quarter: 2015Q2

REPORT INFORMATION
  Report Type: Spontaneous
  Country: GB (occurrence: GB)
  Receive Date: 20150630
  Receipt Date: 20150630
  Transmission Date: 20150821
  Serious: Yes (Other)
  Sender: FDA-Public Use
  Company Number: GB-ASTRAZENECA-2015SE61473

PATIENT
  Age: 68 Year
  Sex: Female
  Weight: 82.6 kg

DRUGS (4)
  1. MOMETASONE [Concomitant]
     Active Substance: MOMETASONE
  2. THYROXINE [Concomitant]
     Active Substance: LEVOTHYROXINE
  3. FELODIPINE. [Concomitant]
     Active Substance: FELODIPINE
  4. CRESTOR [Suspect]
     Active Substance: ROSUVASTATIN CALCIUM
     Indication: BLOOD CHOLESTEROL ABNORMAL
     Route: 048
     Dates: start: 20150510, end: 20150604

REACTIONS (11)
  - Arthralgia [Not Recovered/Not Resolved]
  - Cough [Recovering/Resolving]
  - Sleep disorder [Recovered/Resolved]
  - Dyspepsia [Recovered/Resolved]
  - Muscular weakness [Recovering/Resolving]
  - Fatigue [Recovering/Resolving]
  - Nightmare [Recovering/Resolving]
  - Insomnia [Recovered/Resolved]
  - Myalgia [Not Recovered/Not Resolved]
  - Vitreous floaters [Recovering/Resolving]
  - Dyspnoea [Recovering/Resolving]

NARRATIVE: CASE EVENT DATE: 20150512
